FAERS Safety Report 24834516 (Version 1)
Quarter: 2025Q1

REPORT INFORMATION
  Report Type: Report from Study
  Country: US (occurrence: US)
  Receive Date: 20250113
  Receipt Date: 20250113
  Transmission Date: 20250409
  Serious: No
  Sender: DECIPHERA PHARMACEUTICALS
  Company Number: US-DECIPHERA PHARMACEUTICALS LLC-2025US000001

PATIENT
  Age: 63 Year
  Sex: Male

DRUGS (2)
  1. QINLOCK [Suspect]
     Active Substance: RIPRETINIB
     Indication: Gastrointestinal stromal tumour
  2. QINLOCK [Suspect]
     Active Substance: RIPRETINIB
     Dosage: 150 MILLIGRAM, BID (6 PILLS A DAY)
     Dates: start: 20241021

REACTIONS (2)
  - Hypoaesthesia [Unknown]
  - Peripheral coldness [Unknown]

NARRATIVE: CASE EVENT DATE: 20240101
